FAERS Safety Report 24725999 (Version 1)
Quarter: 2024Q4

REPORT INFORMATION
  Report Type: Spontaneous
  Country: AU (occurrence: AU)
  Receive Date: 20241212
  Receipt Date: 20241212
  Transmission Date: 20250114
  Serious: Yes (Other)
  Sender: GILEAD
  Company Number: AU-GILEAD-2024-0696122

PATIENT
  Age: 53 Year
  Sex: Male

DRUGS (2)
  1. VEMLIDY [Suspect]
     Active Substance: TENOFOVIR ALAFENAMIDE FUMARATE
     Indication: Chronic hepatitis B
     Dosage: UNK
     Route: 065
     Dates: end: 201802
  2. VEMLIDY [Suspect]
     Active Substance: TENOFOVIR ALAFENAMIDE FUMARATE
     Dosage: UNK
     Route: 065
     Dates: start: 201911

REACTIONS (5)
  - Nephropathy toxic [Unknown]
  - Hepatitis B [Recovering/Resolving]
  - Osteopenia [Recovered/Resolved]
  - Bone density decreased [Unknown]
  - Blood phosphorus decreased [Unknown]
